FAERS Safety Report 14417481 (Version 2)
Quarter: 2018Q1

REPORT INFORMATION
  Report Type: Spontaneous
  Country: RS (occurrence: RS)
  Receive Date: 20180122
  Receipt Date: 20180130
  Transmission Date: 20180509
  Serious: Yes (Other)
  Sender: FDA-Public Use
  Company Number: RS-JNJFOC-20180119131

PATIENT
  Sex: Female

DRUGS (2)
  1. TRUVADA [Suspect]
     Active Substance: EMTRICITABINE\TENOFOVIR DISOPROXIL FUMARATE
     Indication: PRODUCT USED FOR UNKNOWN INDICATION
     Route: 065
     Dates: start: 201801
  2. REZOLSTA [Suspect]
     Active Substance: COBICISTAT\DARUNAVIR ETHANOLATE
     Indication: PRODUCT USED FOR UNKNOWN INDICATION
     Route: 048
     Dates: start: 201801

REACTIONS (4)
  - Swollen tongue [Unknown]
  - Lip swelling [Unknown]
  - Rash generalised [Unknown]
  - Enanthema [Unknown]
